FAERS Safety Report 10577526 (Version 1)
Quarter: 2014Q4

REPORT INFORMATION
  Report Type: Spontaneous
  Country: BR (occurrence: BR)
  Receive Date: 20141111
  Receipt Date: 20141111
  Transmission Date: 20150529
  Serious: Yes (Other)
  Sender: FDA-Public Use
  Company Number: BR-ELI_LILLY_AND_COMPANY-BR201410012237

PATIENT
  Sex: Male

DRUGS (16)
  1. HUMULIN R [Concomitant]
     Active Substance: INSULIN HUMAN
     Indication: PRODUCT USED FOR UNKNOWN INDICATION
     Dosage: UNK, PRN
     Route: 065
  2. CALCIUM CITRATE [Concomitant]
     Active Substance: CALCIUM CITRATE
     Dosage: 500 MG, UNKNOWN
     Route: 065
  3. LOSARTAN [Concomitant]
     Active Substance: LOSARTAN
     Dosage: 50 MG, UNKNOWN
     Route: 065
  4. ALDACTONE [Concomitant]
     Active Substance: SPIRONOLACTONE
     Dosage: 25 MG, UNKNOWN
     Route: 065
  5. DESVENLAFAXINE SUCCINATE [Concomitant]
     Active Substance: DESVENLAFAXINE SUCCINATE
     Dosage: UNK, UNKNOWN
     Route: 065
  6. CLORDIAZEPOXIDO [Concomitant]
     Dosage: 10 MG, UNKNOWN
     Route: 065
  7. PURAN [Concomitant]
     Active Substance: LEVOTHYROXINE SODIUM
     Dosage: 75 MG, UNKNOWN
     Route: 065
  8. MILGAMMA                           /01146701/ [Concomitant]
     Dosage: 1 DF, UNKNOWN
     Route: 065
  9. HUMULIN N [Suspect]
     Active Substance: INSULIN HUMAN
     Indication: PRODUCT USED FOR UNKNOWN INDICATION
     Dosage: 45 IU, EACH MORNING
     Route: 058
     Dates: end: 201410
  10. AAS [Concomitant]
     Active Substance: ASPIRIN
     Dosage: UNK, UNKNOWN
     Route: 065
  11. HUMULIN N [Suspect]
     Active Substance: INSULIN HUMAN
     Dosage: 8 IU, QD
     Route: 058
     Dates: end: 201410
  12. ALOPURINOL [Concomitant]
     Active Substance: ALLOPURINOL
     Dosage: 100 MG, UNKNOWN
     Route: 065
  13. DIPIRONA [Concomitant]
     Active Substance: METAMIZOLE
     Dosage: 1 G, PRN
     Route: 065
  14. PANTOPRAZOLE [Concomitant]
     Active Substance: PANTOPRAZOLE SODIUM
     Dosage: 20 MG, UNKNOWN
     Route: 065
  15. CILOSTAZOL. [Concomitant]
     Active Substance: CILOSTAZOL
     Dosage: 100 MG, UNKNOWN
     Route: 065
  16. ROSUVASTATINA                      /01588601/ [Concomitant]
     Dosage: 10 MG, UNKNOWN
     Route: 065

REACTIONS (4)
  - Cataract [Unknown]
  - Visual impairment [Unknown]
  - Drug ineffective [Not Recovered/Not Resolved]
  - Blood glucose increased [Not Recovered/Not Resolved]

NARRATIVE: CASE EVENT DATE: 2013
